FAERS Safety Report 23604208 (Version 1)
Quarter: 2024Q1

REPORT INFORMATION
  Report Type: Report from Study
  Country: ES (occurrence: ES)
  Receive Date: 20240307
  Receipt Date: 20240307
  Transmission Date: 20240409
  Serious: Yes (Other)
  Sender: FDA-Public Use
  Company Number: ES-BEH-2023164104

PATIENT
  Weight: 18.5 kg

DRUGS (6)
  1. IDELVION [Suspect]
     Active Substance: COAGULATION FACTOR IX RECOMBINANT HUMAN
     Indication: Prophylaxis
     Dosage: 500 INTERNATIONAL UNIT EVERY 10 DAYS
     Route: 042
     Dates: start: 20201214
  2. IDELVION [Suspect]
     Active Substance: COAGULATION FACTOR IX RECOMBINANT HUMAN
     Indication: Prophylaxis
     Dosage: 500 INTERNATIONAL UNIT EVERY 10 DAYS
     Route: 042
     Dates: start: 20201214
  3. IDELVION [Suspect]
     Active Substance: COAGULATION FACTOR IX RECOMBINANT HUMAN
     Dosage: UNK
     Route: 065
     Dates: start: 20230209
  4. IDELVION [Suspect]
     Active Substance: COAGULATION FACTOR IX RECOMBINANT HUMAN
     Dosage: UNK
     Route: 065
     Dates: start: 20230209
  5. ACETAMINOPHEN [Concomitant]
     Active Substance: ACETAMINOPHEN
  6. ONDANSETRON HYDROCHLORIDE [Concomitant]
     Active Substance: ONDANSETRON HYDROCHLORIDE
     Dosage: 3 MILLIGRAM, OD

REACTIONS (3)
  - Device related bacteraemia [Recovered/Resolved]
  - Staphylococcal infection [Unknown]
  - Device related infection [Unknown]

NARRATIVE: CASE EVENT DATE: 20230214
